FAERS Safety Report 13681042 (Version 1)
Quarter: 2017Q2

REPORT INFORMATION
  Report Type: Spontaneous
  Country: US (occurrence: US)
  Receive Date: 20170623
  Receipt Date: 20170623
  Transmission Date: 20170830
  Serious: No
  Sender: FDA-Public Use
  Company Number: US-TEVA-672640USA

PATIENT
  Age: 70 Year
  Sex: Male
  Weight: 79.45 kg

DRUGS (1)
  1. FINASTERIDE. [Suspect]
     Active Substance: FINASTERIDE
     Dates: start: 2015

REACTIONS (3)
  - Breast tenderness [Unknown]
  - Breast pain [Unknown]
  - Nipple pain [Unknown]

NARRATIVE: CASE EVENT DATE: 201605
